FAERS Safety Report 15532035 (Version 1)
Quarter: 2018Q4

REPORT INFORMATION
  Report Type: Report from Study
  Country: None (occurrence: CO)
  Receive Date: 20181019
  Receipt Date: 20181019
  Transmission Date: 20190205
  Serious: Yes (Other)
  Sender: FDA-Public Use
  Company Number: CO-ABBVIE-18K-036-2524945-00

PATIENT
  Age: 45 Year
  Sex: Female
  Weight: 79 kg

DRUGS (2)
  1. HUMIRA [Suspect]
     Active Substance: ADALIMUMAB
     Indication: ANKYLOSING SPONDYLITIS
     Route: 058
     Dates: start: 20091118
  2. HUMIRA [Suspect]
     Active Substance: ADALIMUMAB
     Indication: ANKYLOSING SPONDYLITIS
     Dosage: HUMIRA AC
     Route: 058
     Dates: end: 20180823

REACTIONS (6)
  - Ankle deformity [Unknown]
  - Ligament disorder [Unknown]
  - Accident [Recovering/Resolving]
  - Osteoarthritis [Recovering/Resolving]
  - Gait disturbance [Unknown]
  - Hand fracture [Recovering/Resolving]

NARRATIVE: CASE EVENT DATE: 20181010
